FAERS Safety Report 7533139-2 (Version None)
Quarter: 2011Q2

REPORT INFORMATION
  Report Type: 
  Country: None (occurrence: None)
  Receive Date: 20110608
  Receipt Date: 20110601
  Transmission Date: 20111010
  Serious: Yes (Hospitalization, Other)
  Sender: FDA-Public Use
  Company Number: BR-PFIZER INC-2011119516

PATIENT
  Sex: Female

DRUGS (6)
  1. ABLOK PLUS [Concomitant]
     Indication: HYPERTENSION
     Dosage: UNK
  2. CHLORTHALIDONE [Concomitant]
     Indication: HYPERTENSION
     Dosage: 12.5 MG, UNK
  3. DIAMOX [Concomitant]
     Indication: INTRAOCULAR PRESSURE TEST
     Dosage: ONE TABLET (UNSPECIFIED STRENGTH) AT 17:00H
  4. ATENOLOL [Concomitant]
     Indication: HYPERTENSION
     Dosage: 25 MG, UNK
  5. XALATAN [Suspect]
     Indication: GLAUCOMA
     Dosage: UNKNOWN DOSAGE, EVERY NIGHT
     Route: 047
     Dates: start: 20110201
  6. GARDENAL ^AVENTIS^ [Concomitant]
     Indication: CONVULSION PROPHYLAXIS
     Dosage: 6 MG, UNK

REACTIONS (6)
  - MEMORY IMPAIRMENT [None]
  - VISUAL IMPAIRMENT [None]
  - EXPRESSIVE LANGUAGE DISORDER [None]
  - SYNCOPE [None]
  - DIZZINESS [None]
  - INTRAOCULAR PRESSURE INCREASED [None]
